FAERS Safety Report 4316427-2 (Version None)
Quarter: 2004Q1

REPORT INFORMATION
  Report Type: 
  Country: None (occurrence: None)
  Receive Date: 20040312
  Receipt Date: 20040312
  Transmission Date: 20041129
  Serious: No
  Sender: FDA-Public Use
  Company Number: None

PATIENT
  Age: 69 Year
  Sex: Female

DRUGS (13)
  1. TEQUIN [Suspect]
     Indication: PNEUMONIA
     Dosage: 400MG QD INTRAVENOUS
     Route: 042
     Dates: start: 20040308, end: 20040309
  2. ALBUTEROL [Concomitant]
  3. ATROVENT [Concomitant]
  4. CARDURA [Concomitant]
  5. ASPIRIN [Concomitant]
  6. LIPITOR [Concomitant]
  7. NIACIN [Concomitant]
  8. PREVACID [Concomitant]
  9. NORVASC [Concomitant]
  10. CELEBREX [Concomitant]
  11. AVANDIA [Concomitant]
  12. GLUCOTROL [Concomitant]
  13. HYDROCHLOROTHIAZIDE [Concomitant]

REACTIONS (1)
  - BLOOD GLUCOSE DECREASED [None]
